FAERS Safety Report 4635338-6 (Version None)
Quarter: 2005Q2

REPORT INFORMATION
  Report Type: 
  Country: None (occurrence: None)
  Receive Date: 20050411
  Receipt Date: 20050404
  Transmission Date: 20051028
  Serious: Yes (Death, Life-Threatening, Hospitalization)
  Sender: FDA-Public Use
  Company Number: HQWYE974515DEC04

PATIENT
  Age: 62 Year
  Sex: Female

DRUGS (1)
  1. RAPAMUNE (SIROLIMUS, TABLET) LOT NO.: 2004-P0909, 2004-P0930 [Suspect]
     Indication: PROPHYLAXIS AGAINST TRANSPLANT REJECTION
     Dosage: VARIED DOSE OF 2 TO 5 MG; ORAL
     Route: 048
     Dates: start: 20041104, end: 20041130

REACTIONS (12)
  - ATELECTASIS [None]
  - BLOOD CULTURE POSITIVE [None]
  - BRONCHOPNEUMONIA [None]
  - CANDIDA SEPSIS [None]
  - DIALYSIS [None]
  - FUNGAL INFECTION [None]
  - ILEUS PARALYTIC [None]
  - INTESTINAL DILATATION [None]
  - LACTIC ACIDOSIS [None]
  - MICROANGIOPATHIC HAEMOLYTIC ANAEMIA [None]
  - MULTI-ORGAN FAILURE [None]
  - PLEURAL EFFUSION [None]
